FAERS Safety Report 16679333 (Version 1)
Quarter: 2019Q3

REPORT INFORMATION
  Report Type: Report from Study
  Country: US (occurrence: US)
  Receive Date: 20190807
  Receipt Date: 20190807
  Transmission Date: 20191004
  Serious: Yes (Hospitalization)
  Sender: FDA-Public Use
  Company Number: US-JNJFOC-20190807585

PATIENT
  Sex: Male

DRUGS (13)
  1. ASPIRIN EC [Concomitant]
     Active Substance: ASPIRIN
  2. TIMOLOL MALEATE. [Concomitant]
     Active Substance: TIMOLOL MALEATE
  3. ATORVASTATIN CALCIUM. [Concomitant]
     Active Substance: ATORVASTATIN CALCIUM
  4. BYSTOLIC [Concomitant]
     Active Substance: NEBIVOLOL HYDROCHLORIDE
  5. APIDRA [Concomitant]
     Active Substance: INSULIN GLULISINE
  6. LANTUS [Concomitant]
     Active Substance: INSULIN GLARGINE
  7. IMBRUVICA [Suspect]
     Active Substance: IBRUTINIB
     Indication: CHRONIC LYMPHOCYTIC LEUKAEMIA
     Dosage: 420 MG, QD
     Route: 048
     Dates: start: 20190326
  8. DORZOLAMIDE HCL [Concomitant]
     Active Substance: DORZOLAMIDE HYDROCHLORIDE
  9. DAILY MULTIVITAMIN [Concomitant]
     Active Substance: VITAMINS
  10. FUROSEMIDE. [Concomitant]
     Active Substance: FUROSEMIDE
  11. LATANOPROST. [Concomitant]
     Active Substance: LATANOPROST
  12. RAMIPRIL. [Concomitant]
     Active Substance: RAMIPRIL
  13. NITROSTAT [Concomitant]
     Active Substance: NITROGLYCERIN

REACTIONS (1)
  - Critical illness [Unknown]
